FAERS Safety Report 5169812-3 (Version None)
Quarter: 2006Q4

REPORT INFORMATION
  Report Type: 
  Country: None (occurrence: None)
  Receive Date: 20061212
  Receipt Date: 20061129
  Transmission Date: 20070319
  Serious: Yes (Death)
  Sender: FDA-Public Use
  Company Number: GB-PURDUE-GBR_2006_0002665

PATIENT

DRUGS (4)
  1. PREGABALIN [Concomitant]
     Indication: DRUG USE FOR UNKNOWN INDICATION
     Route: 065
  2. DULOXETINE [Concomitant]
     Indication: DRUG USE FOR UNKNOWN INDICATION
     Route: 065
  3. OXYCONTIN [Suspect]
     Indication: NEURALGIA
     Route: 065
  4. OXYNORM [Suspect]
     Indication: NEURALGIA
     Route: 065

REACTIONS (1)
  - DEATH [None]
